FAERS Safety Report 13363107 (Version 2)
Quarter: 2017Q2

REPORT INFORMATION
  Report Type: Spontaneous
  Country: CH (occurrence: IT)
  Receive Date: 20170323
  Receipt Date: 20170417
  Transmission Date: 20170830
  Serious: Yes (Other)
  Sender: FDA-Public Use
  Company Number: CH-LPDUSPRD-20170293

PATIENT
  Age: 38 Year
  Sex: Female

DRUGS (1)
  1. FERINJECT [Suspect]
     Active Substance: FERRIC CARBOXYMALTOSE
     Dosage: 1000MG, 1 IN 1 TOTAL
     Route: 041
     Dates: start: 20170228, end: 20170228

REACTIONS (2)
  - Pruritus [Unknown]
  - Dry mouth [Unknown]

NARRATIVE: CASE EVENT DATE: 20170228
